FAERS Safety Report 17571764 (Version 1)
Quarter: 2020Q1

REPORT INFORMATION
  Report Type: Spontaneous
  Country: US (occurrence: US)
  Receive Date: 20200323
  Receipt Date: 20200323
  Transmission Date: 20200409
  Serious: No
  Sender: FDA-Public Use
  Company Number: US-VERTEX PHARMACEUTICALS-2020-006410

PATIENT
  Sex: Female

DRUGS (3)
  1. KALYDECO [Suspect]
     Active Substance: IVACAFTOR
     Indication: CYSTIC FIBROSIS
     Dosage: 150 MG, BID
     Route: 048
  2. PROAIR HFA [Concomitant]
     Active Substance: ALBUTEROL SULFATE
     Dosage: HFA AER AD,
  3. PULMOZYME [Concomitant]
     Active Substance: DORNASE ALFA

REACTIONS (1)
  - Cough [Unknown]
